FAERS Safety Report 26181245 (Version 1)
Quarter: 2025Q4

REPORT INFORMATION
  Report Type: Spontaneous
  Country: PR (occurrence: PR)
  Receive Date: 20251221
  Receipt Date: 20251221
  Transmission Date: 20260118
  Serious: No
  Sender: ANI
  Company Number: PR-ANIPHARMA-2025-PR-000114

PATIENT
  Age: 56 Year
  Sex: Female
  Weight: 47.63 kg

DRUGS (4)
  1. CORTICOTROPIN [Suspect]
     Active Substance: CORTICOTROPIN
     Indication: Multiple sclerosis
     Dosage: 80 UNITS DAILY FOR 15 DAYS
     Route: 030
     Dates: start: 202510, end: 2025
  2. SYNTHROID [Concomitant]
     Active Substance: LEVOTHYROXINE SODIUM
  3. DILANTIN [Concomitant]
     Active Substance: PHENYTOIN
  4. TRILEPTAL [Concomitant]
     Active Substance: OXCARBAZEPINE

REACTIONS (2)
  - Headache [Recovered/Resolved]
  - Oedema [Recovered/Resolved]

NARRATIVE: CASE EVENT DATE: 20251001
